FAERS Safety Report 11736601 (Version 1)
Quarter: 2015Q4

REPORT INFORMATION
  Report Type: Spontaneous
  Country: US (occurrence: US)
  Receive Date: 20151113
  Receipt Date: 20151113
  Transmission Date: 20160304
  Serious: No
  Sender: FDA-Public Use
  Company Number: US-JNJFOC-20151014668

PATIENT
  Age: 54 Year
  Sex: Female
  Weight: 86.18 kg

DRUGS (1)
  1. REMICADE [Suspect]
     Active Substance: INFLIXIMAB
     Indication: RHEUMATOID ARTHRITIS
     Dosage: 5 UNITS
     Route: 042
     Dates: start: 2014, end: 2015

REACTIONS (2)
  - Migraine [Not Recovered/Not Resolved]
  - Drug dose omission [Recovered/Resolved]

NARRATIVE: CASE EVENT DATE: 20151019
